FAERS Safety Report 4843232-0 (Version None)
Quarter: 2005Q4

REPORT INFORMATION
  Report Type: 
  Country: None (occurrence: None)
  Receive Date: 20051201
  Receipt Date: 20051122
  Transmission Date: 20060501
  Serious: Yes (Other)
  Sender: FDA-Public Use
  Company Number: NL-MERCK-0511NLD00033

PATIENT
  Age: 53 Year
  Sex: Female

DRUGS (9)
  1. ZETIA [Suspect]
     Indication: HYPERCHOLESTEROLAEMIA
     Route: 048
     Dates: start: 20040818, end: 20050401
  2. ATORVASTATIN CALCIUM [Suspect]
     Indication: HYPERCHOLESTEROLAEMIA
     Route: 048
     Dates: start: 19990101, end: 20050401
  3. METOPROLOL TARTRATE [Concomitant]
     Route: 048
     Dates: start: 20000101
  4. FUROSEMIDE [Concomitant]
     Route: 048
     Dates: start: 20000101
  5. NITROGLYCERIN [Concomitant]
     Route: 061
  6. ASPIRIN [Concomitant]
     Route: 048
  7. ESOMEPRAZOLE MAGNESIUM [Concomitant]
     Route: 047
     Dates: start: 20000101
  8. BETAHISTINE HYDROCHLORIDE [Concomitant]
     Route: 048
     Dates: start: 20040101
  9. CAPTOPRIL [Concomitant]
     Route: 048
     Dates: start: 20040101

REACTIONS (1)
  - LICHEN PLANUS [None]
